FAERS Safety Report 16845453 (Version 1)
Quarter: 2019Q3

REPORT INFORMATION
  Report Type: Spontaneous
  Country: US (occurrence: US)
  Receive Date: 20190924
  Receipt Date: 20190924
  Transmission Date: 20191005
  Serious: No
  Sender: FDA-Public Use
  Company Number: US-ASSERTIO THERAPEUTICS, INC.-US-2019DEP000433

PATIENT
  Age: 54 Year
  Sex: Female

DRUGS (2)
  1. DIAZEPAM. [Concomitant]
     Active Substance: DIAZEPAM
     Indication: PRODUCT USED FOR UNKNOWN INDICATION
     Dosage: UNK
  2. GRALISE [Suspect]
     Active Substance: GABAPENTIN
     Indication: MIGRAINE
     Dosage: 300 MG, QD
     Route: 048
     Dates: start: 20190308

REACTIONS (6)
  - Irritability [Unknown]
  - Aggression [Unknown]
  - Drug titration error [Unknown]
  - Underdose [Unknown]
  - Product use in unapproved indication [Unknown]
  - Agitation [Unknown]

NARRATIVE: CASE EVENT DATE: 2019
